FAERS Safety Report 24675329 (Version 1)
Quarter: 2024Q4

REPORT INFORMATION
  Report Type: Spontaneous
  Country: US (occurrence: US)
  Receive Date: 20241128
  Receipt Date: 20241128
  Transmission Date: 20250115
  Serious: Yes (Other)
  Sender: TEVA
  Company Number: US-TEVA-VS-3267635

PATIENT
  Age: 3 Month
  Sex: Male

DRUGS (2)
  1. VINCRISTINE [Suspect]
     Active Substance: VINCRISTINE
     Indication: NTRK gene fusion cancer
     Dosage: RECEIVED 2 CYCLES BEFORE ADR
     Route: 065
  2. ACTINOMYCIN D [Suspect]
     Active Substance: DACTINOMYCIN
     Indication: NTRK gene fusion cancer
     Dosage: RECEIVED 2 CYCLES BEFORE ADR
     Route: 065

REACTIONS (2)
  - Toxicity to various agents [Unknown]
  - Venoocclusive liver disease [Unknown]
